FAERS Safety Report 25085922 (Version 1)
Quarter: 2025Q1

REPORT INFORMATION
  Report Type: Spontaneous
  Country: FR (occurrence: FR)
  Receive Date: 20250317
  Receipt Date: 20250317
  Transmission Date: 20250409
  Serious: Yes (Other)
  Sender: SANOFI AVENTIS
  Company Number: None

PATIENT
  Age: 68 Year
  Sex: Female
  Weight: 65 kg

DRUGS (20)
  1. LOVENOX [Suspect]
     Active Substance: ENOXAPARIN SODIUM
     Indication: Thrombosis prophylaxis
     Route: 042
     Dates: start: 20250121, end: 20250121
  2. PROPOFOL [Suspect]
     Active Substance: PROPOFOL
     Indication: General anaesthesia
     Route: 042
     Dates: start: 20250120, end: 20250120
  3. METRONIDAZOLE [Suspect]
     Active Substance: METRONIDAZOLE
     Indication: Antibiotic prophylaxis
     Route: 042
     Dates: start: 20250120, end: 20250120
  4. ONDANSETRON HYDROCHLORIDE [Suspect]
     Active Substance: ONDANSETRON HYDROCHLORIDE
     Indication: Prophylaxis of nausea and vomiting
     Route: 042
     Dates: start: 20250121, end: 20250121
  5. OXYCODONE HYDROCHLORIDE [Suspect]
     Active Substance: OXYCODONE HYDROCHLORIDE
     Indication: Analgesic intervention supportive therapy
     Route: 042
     Dates: start: 20250120, end: 20250121
  6. ROPIVACAINE [Suspect]
     Active Substance: ROPIVACAINE
     Indication: Anaesthesia
     Route: 042
     Dates: start: 20250120, end: 20250121
  7. PHLOROGLUCINOL\1,3,5-TRIMETHOXYBENZENE [Suspect]
     Active Substance: PHLOROGLUCINOL\1,3,5-TRIMETHOXYBENZENE
     Indication: Abdominal pain
     Route: 042
     Dates: start: 20250120, end: 20250121
  8. SUFENTANIL CITRATE [Suspect]
     Active Substance: SUFENTANIL CITRATE
     Indication: General anaesthesia
     Route: 042
     Dates: start: 20250120, end: 20250120
  9. CLINDAMYCIN PALMITATE HYDROCHLORIDE [Suspect]
     Active Substance: CLINDAMYCIN PALMITATE HYDROCHLORIDE
     Indication: Antibiotic prophylaxis
     Route: 042
     Dates: start: 20250120, end: 20250120
  10. ROCURONIUM [Suspect]
     Active Substance: ROCURONIUM BROMIDE
     Indication: General anaesthesia
     Route: 042
     Dates: start: 20250120, end: 20250120
  11. DROPERIDOL [Suspect]
     Active Substance: DROPERIDOL
     Indication: General anaesthesia
     Route: 042
     Dates: start: 20250120, end: 20250120
  12. KETAMINE [Suspect]
     Active Substance: KETAMINE
     Indication: General anaesthesia
     Route: 042
     Dates: start: 20250120, end: 20250120
  13. EPHEDRINE [Suspect]
     Active Substance: EPHEDRINE
     Indication: Hypotension
     Route: 042
     Dates: start: 20250120, end: 20250120
  14. DEXAMETHASONE SODIUM PHOSPHATE [Suspect]
     Active Substance: DEXAMETHASONE SODIUM PHOSPHATE
     Indication: Analgesic intervention supportive therapy
     Route: 042
     Dates: start: 20250120, end: 20250120
  15. ACETAMINOPHEN [Concomitant]
     Active Substance: ACETAMINOPHEN
  16. NEFOPAM HYDROCHLORIDE [Concomitant]
     Active Substance: NEFOPAM HYDROCHLORIDE
  17. LEVOTHYROXINE [Concomitant]
     Active Substance: LEVOTHYROXINE
  18. SUGAMMADEX SODIUM [Concomitant]
     Active Substance: SUGAMMADEX SODIUM
  19. DIOSMIN\HESPERIDIN [Concomitant]
     Active Substance: DIOSMIN\HESPERIDIN
  20. VITAMIN D3 [Concomitant]
     Active Substance: CHOLECALCIFEROL

REACTIONS (1)
  - Rash maculo-papular [Recovered/Resolved]

NARRATIVE: CASE EVENT DATE: 20250122
